FAERS Safety Report 19616851 (Version 1)
Quarter: 2021Q3

REPORT INFORMATION
  Report Type: Spontaneous
  Country: US (occurrence: US)
  Receive Date: 20210727
  Receipt Date: 20210727
  Transmission Date: 20211014
  Serious: No
  Sender: FDA-Public Use
  Company Number: US-ABBVIE-21K-163-3739078-00

PATIENT
  Sex: Female

DRUGS (3)
  1. CARAFATE [Concomitant]
     Active Substance: SUCRALFATE
     Indication: PRODUCT USED FOR UNKNOWN INDICATION
  2. SYNTHROID [Suspect]
     Active Substance: LEVOTHYROXINE SODIUM
     Indication: HYPOTHYROIDISM
     Dosage: 88 MCG ONCE DAILY FOR 1 WEEK AND ALTERNATE WITH 88 MCG FOR 6 DAYS AND 44 MCG FOR 1 DAY.
     Route: 048
  3. PEPCID [Concomitant]
     Active Substance: FAMOTIDINE
     Indication: PRODUCT USED FOR UNKNOWN INDICATION

REACTIONS (4)
  - Myalgia [Unknown]
  - Arthralgia [Not Recovered/Not Resolved]
  - Blood thyroid stimulating hormone abnormal [Unknown]
  - Pain in extremity [Unknown]
